FAERS Safety Report 9567955 (Version 1)
Quarter: 2013Q3

REPORT INFORMATION
  Report Type: Spontaneous
  Country: US (occurrence: US)
  Receive Date: 20130930
  Receipt Date: 20130930
  Transmission Date: 20140515
  Serious: No
  Sender: FDA-Public Use
  Company Number: US-AMGEN-USASP2013057770

PATIENT
  Age: 49 Year
  Sex: Male

DRUGS (11)
  1. ENBREL [Suspect]
     Indication: PSORIATIC ARTHROPATHY
     Dosage: 50 MG, QWK
     Route: 058
     Dates: start: 201304
  2. AMLODIPINE [Concomitant]
     Dosage: 5 MG, UNK
  3. HUMIRA [Concomitant]
     Dosage: 40 MG/0.8
  4. METFORMIN [Concomitant]
     Dosage: 1000 MG, UNK
  5. ADVAIR [Concomitant]
     Dosage: 100/50
  6. NEXIUM                             /01479302/ [Concomitant]
     Dosage: 20 MG, UNK
  7. CRESTOR [Concomitant]
     Dosage: 20 MG, UNK
  8. FISH OIL [Concomitant]
     Dosage: UNK
  9. VITAMIN D                          /00107901/ [Concomitant]
     Dosage: 1000 UNIT, UNK
  10. TRIAMTERENE AND HYDROCHLOROTHIAZID [Concomitant]
     Dosage: 37.5-25
  11. BYDUREON [Concomitant]
     Dosage: UNK

REACTIONS (1)
  - Drug ineffective [Unknown]
